FAERS Safety Report 4899885-4 (Version None)
Quarter: 2006Q1

REPORT INFORMATION
  Report Type: 
  Country: None (occurrence: None)
  Receive Date: 20060118
  Receipt Date: 20051017
  Transmission Date: 20060701
  Serious: No
  Sender: FDA-Public Use
  Company Number: 2005002026

PATIENT
  Age: 67 Year
  Sex: Female

DRUGS (10)
  1. TARCEVA [Suspect]
     Indication: TONGUE NEOPLASM MALIGNANT STAGE UNSPECIFIED
     Dosage: 150MG (QD), ORAL
     Route: 048
     Dates: start: 20051005, end: 20051016
  2. DURAGESIC-100 [Concomitant]
  3. CELEBREX [Concomitant]
  4. PAXIL [Concomitant]
  5. ATIVAN (LORAZAPEM) [Concomitant]
  6. DIPEN (DILTIAZEM) [Concomitant]
  7. HYDROCODONE BITARTRATE [Concomitant]
  8. LAXITIVE [Concomitant]
  9. FLUOROURACIL [Concomitant]
  10. CISPLATIN [Concomitant]

REACTIONS (4)
  - DIARRHOEA [None]
  - NAUSEA [None]
  - NERVOUSNESS [None]
  - VOMITING [None]
